FAERS Safety Report 15412508 (Version 1)
Quarter: 2018Q3

REPORT INFORMATION
  Report Type: Spontaneous
  Country: US (occurrence: US)
  Receive Date: 20180921
  Receipt Date: 20180921
  Transmission Date: 20181010
  Serious: No
  Sender: FDA-Public Use
  Company Number: US-SA-2018SA260705

PATIENT
  Age: 43 Year
  Sex: Male

DRUGS (3)
  1. ALIROCUMAB PREFILLED PEN [Suspect]
     Active Substance: ALIROCUMAB
     Indication: BLOOD CHOLESTEROL
     Dosage: 75 MG
     Route: 058
     Dates: start: 2017
  2. FISH OIL [Concomitant]
     Active Substance: FISH OIL
     Indication: BLOOD TRIGLYCERIDES
  3. PRALUENT [Suspect]
     Active Substance: ALIROCUMAB
     Indication: BLOOD CHOLESTEROL
     Dosage: 75 MG
     Route: 058
     Dates: start: 2017

REACTIONS (4)
  - Drug ineffective [Unknown]
  - Intentional product misuse [Unknown]
  - Hepatic enzyme increased [Unknown]
  - Blood cholesterol increased [Unknown]
